FAERS Safety Report 10037068 (Version 2)
Quarter: 2014Q1

REPORT INFORMATION
  Report Type: Report from Study
  Country: US (occurrence: US)
  Receive Date: 20140326
  Receipt Date: 20140326
  Transmission Date: 20141002
  Serious: Yes (Hospitalization)
  Sender: FDA-Public Use
  Company Number: US-BRISTOL-MYERS SQUIBB COMPANY-16194235

PATIENT
  Age: 85 Year
  Sex: Female

DRUGS (21)
  1. DASATINIB [Suspect]
     Indication: PANCREATIC CARCINOMA
     Dosage: LAST DOSE: 9SEP11.
     Route: 048
     Dates: start: 20110811
  2. GEMZAR [Suspect]
     Indication: PANCREATIC CARCINOMA
     Route: 042
     Dates: start: 20110811
  3. COZAAR [Concomitant]
     Dates: end: 20111021
  4. RANITIDINE [Concomitant]
  5. OMEPRAZOLE [Concomitant]
  6. VITAMIN D3 [Concomitant]
  7. SERTRALINE [Concomitant]
  8. MAGNESIUM OXIDE [Concomitant]
  9. MIRALAX [Concomitant]
  10. VITAMIN B12 [Concomitant]
  11. ESTROPIPATE [Concomitant]
  12. ASPIRIN [Concomitant]
  13. WARFARIN [Concomitant]
  14. HYDROMORPHONE [Concomitant]
  15. PREDNISONE [Concomitant]
  16. CHLORTHALIDONE [Concomitant]
     Dates: end: 20111017
  17. ONDANSETRON [Concomitant]
  18. LORAZEPAM [Concomitant]
  19. MARINOL [Concomitant]
  20. AMLODIPINE [Concomitant]
     Indication: HYPERTENSION
  21. MEGESTROL [Concomitant]

REACTIONS (1)
  - Dehydration [Recovered/Resolved]
